FAERS Safety Report 6036574-7 (Version None)
Quarter: 2009Q1

REPORT INFORMATION
  Report Type: 
  Country: None (occurrence: None)
  Receive Date: 20090112
  Receipt Date: 20090106
  Transmission Date: 20090719
  Serious: Yes (Death, Life-Threatening, Hospitalization)
  Sender: FDA-Public Use
  Company Number: 2008-181896-NL

PATIENT
  Sex: Female

DRUGS (1)
  1. FOLLITROPIN BETA [Suspect]
     Indication: OVARIAN DISORDER

REACTIONS (12)
  - BLOOD CULTURE POSITIVE [None]
  - CAESAREAN SECTION [None]
  - CULTURE THROAT POSITIVE [None]
  - DEATH NEONATAL [None]
  - ENTEROBACTER INFECTION [None]
  - GENERAL PHYSICAL HEALTH DETERIORATION [None]
  - INTRAVENTRICULAR HAEMORRHAGE [None]
  - NEONATAL HYPOTENSION [None]
  - OLIGURIA [None]
  - PREMATURE BABY [None]
  - SEPSIS NEONATAL [None]
  - SMALL FOR DATES BABY [None]
